FAERS Safety Report 18793759 (Version 1)
Quarter: 2021Q1

REPORT INFORMATION
  Report Type: Spontaneous
  Country: US (occurrence: US)
  Receive Date: 20210127
  Receipt Date: 20210127
  Transmission Date: 20210419
  Serious: Yes (Death, Other)
  Sender: FDA-Public Use
  Company Number: US-AMGEN-USASP2021010527

PATIENT

DRUGS (1)
  1. TRASTUZUMAB. [Suspect]
     Active Substance: TRASTUZUMAB
     Indication: NEOPLASM MALIGNANT
     Dosage: UNK
     Route: 065

REACTIONS (10)
  - Chest pain [Unknown]
  - Hypertension [Unknown]
  - Death [Fatal]
  - Cardiomyopathy [Unknown]
  - Palpitations [Unknown]
  - Left ventricular failure [Unknown]
  - Cardiac disorder [Unknown]
  - Dyspnoea [Unknown]
  - Cardiac function test abnormal [Unknown]
  - Myocarditis [Unknown]
